FAERS Safety Report 6305657-6 (Version None)
Quarter: 2009Q3

REPORT INFORMATION
  Report Type: 
  Country: None (occurrence: None)
  Receive Date: 20090807
  Receipt Date: 20090723
  Transmission Date: 20100115
  Serious: Yes (Other)
  Sender: FDA-Public Use
  Company Number: ADE2009-0769

PATIENT
  Age: 60 Year
  Sex: Male

DRUGS (2)
  1. ONDANSETRON [Suspect]
     Dosage: 4MG, X1; IV
     Route: 042
  2. GLYCOPYRROLATE [Concomitant]

REACTIONS (3)
  - HEART RATE DECREASED [None]
  - LOSS OF CONSCIOUSNESS [None]
  - RESPIRATORY ARREST [None]
